FAERS Safety Report 23805657 (Version 1)
Quarter: 2024Q2

REPORT INFORMATION
  Report Type: Spontaneous
  Country: IT (occurrence: IT)
  Receive Date: 20240502
  Receipt Date: 20240502
  Transmission Date: 20240716
  Serious: No
  Sender: FDA-Public Use
  Company Number: IT-ALKEM LABORATORIES LIMITED-IT-ALKEM-2024-00253

PATIENT
  Age: 50 Year
  Sex: Male

DRUGS (5)
  1. LIDOCAINE [Suspect]
     Active Substance: LIDOCAINE
     Indication: Product used for unknown indication
     Dosage: UNK
     Route: 065
  2. CALCIUM CARBONATE [Suspect]
     Active Substance: CALCIUM CARBONATE
     Indication: Supplementation therapy
     Dosage: UNK
     Route: 042
  3. CALCIUM CARBONATE [Suspect]
     Active Substance: CALCIUM CARBONATE
     Dosage: UNK
     Route: 048
  4. SODIUM NITROPRUSSIDE [Concomitant]
     Active Substance: SODIUM NITROPRUSSIDE
     Indication: Pulmonary hypertension
     Dosage: 2.47 MICROGRAM/KILOGRAM/MIN (HIGH DOSE) (INFUSION)
     Route: 065
  5. SODIUM NITROPRUSSIDE [Concomitant]
     Active Substance: SODIUM NITROPRUSSIDE
     Dosage: 1.1 MICROGRAM/KILOGRAM/MIN (DOSE REDUCED)
     Route: 065

REACTIONS (2)
  - Therapy non-responder [Unknown]
  - Drug ineffective [Unknown]
